FAERS Safety Report 6373426-7 (Version None)
Quarter: 2009Q3

REPORT INFORMATION
  Report Type: 
  Country: None (occurrence: None)
  Receive Date: 20090924
  Receipt Date: 20090320
  Transmission Date: 20100115
  Serious: No
  Sender: FDA-Public Use
  Company Number: US-ASTRAZENECA-2009UW07263

PATIENT
  Age: 13802 Day
  Sex: Male
  Weight: 79.4 kg

DRUGS (3)
  1. SEROQUEL [Suspect]
     Indication: BIPOLAR DISORDER
     Route: 048
     Dates: start: 20090313, end: 20090316
  2. LAMICTAL [Concomitant]
     Dates: start: 20090313
  3. ADVIL [Concomitant]

REACTIONS (3)
  - DREAMY STATE [None]
  - HALLUCINATION [None]
  - SOMNOLENCE [None]
